FAERS Safety Report 6507693-3 (Version None)
Quarter: 2009Q4

REPORT INFORMATION
  Report Type: 
  Country: None (occurrence: None)
  Receive Date: 20091221
  Receipt Date: 20091209
  Transmission Date: 20100525
  Serious: Yes (Hospitalization, Disabling, Other)
  Sender: FDA-Public Use
  Company Number: DE-PFIZER INC-2006097931

PATIENT
  Age: 35 Year

DRUGS (12)
  1. LYRICA [Suspect]
     Indication: ARTHRALGIA
     Dosage: 150 MG, 3X/DAY
     Route: 048
     Dates: start: 20050101, end: 20060907
  2. LYRICA [Suspect]
     Indication: PAIN
  3. CELEBREX [Concomitant]
     Route: 048
  4. SIMVASTATIN [Concomitant]
     Dosage: 100 MG, 1X/DAY
  5. PANTOZOL [Concomitant]
     Dosage: UNK
  6. LEVOTHYROXINE SODIUM [Concomitant]
     Indication: HYPOTHYROIDISM
     Dosage: 100 UG, 1X/DAY
  7. OXYCODONE [Concomitant]
     Dosage: 20 MG, 1X/DAY
  8. VALORON N [Concomitant]
     Route: 048
  9. THEOPHYLLINE [Concomitant]
     Indication: CHRONIC OBSTRUCTIVE PULMONARY DISEASE
     Dosage: 375 MG, 1X/DAY
  10. SALBUTAMOL [Concomitant]
     Indication: CHRONIC OBSTRUCTIVE PULMONARY DISEASE
     Dosage: UNK
  11. SYMBICORT [Concomitant]
     Indication: CHRONIC OBSTRUCTIVE PULMONARY DISEASE
     Dosage: UNK
  12. NALOXONE/OXYCODONE [Concomitant]
     Dosage: UNK

REACTIONS (9)
  - ABDOMINAL PAIN LOWER [None]
  - CARCINOEMBRYONIC ANTIGEN INCREASED [None]
  - HELICOBACTER GASTRITIS [None]
  - HYPERANDROGENISM [None]
  - IRON OVERLOAD [None]
  - LYMPHADENITIS [None]
  - LYMPHANGIOMA [None]
  - OVARIAN CYST [None]
  - TRIGEMINAL NEURALGIA [None]
